FAERS Safety Report 5064295-6 (Version None)
Quarter: 2006Q3

REPORT INFORMATION
  Report Type: 
  Country: None (occurrence: None)
  Receive Date: 20060728
  Receipt Date: 20060703
  Transmission Date: 20061208
  Serious: Yes (Other)
  Sender: FDA-Public Use
  Company Number: GB-SP-2006-01692

PATIENT
  Age: 57 Year
  Sex: Male

DRUGS (2)
  1. IMMUCYST [Suspect]
     Indication: BLADDER CANCER
     Route: 043
     Dates: start: 20031201
  2. IMMUCYST [Suspect]
     Route: 043
     Dates: start: 20031201

REACTIONS (4)
  - ARTHRALGIA [None]
  - CONJUNCTIVITIS [None]
  - LYMPHADENOPATHY [None]
  - MUSCULOSKELETAL CHEST PAIN [None]
